FAERS Safety Report 9539438 (Version 1)
Quarter: 2013Q3

REPORT INFORMATION
  Report Type: Spontaneous
  Country: FR (occurrence: FR)
  Receive Date: 20130920
  Receipt Date: 20130920
  Transmission Date: 20140515
  Serious: Yes (Other)
  Sender: FDA-Public Use
  Company Number: FR-TEVA-432355ISR

PATIENT
  Age: 53 Year
  Sex: Male

DRUGS (1)
  1. CEFTRIAXONE TEVA [Suspect]
     Indication: LUNG DISORDER
     Dosage: 1 GRAM DAILY;
     Route: 030
     Dates: start: 20130722, end: 20130723

REACTIONS (2)
  - Burning sensation [Recovered/Resolved]
  - Paraesthesia [Recovered/Resolved]
